FAERS Safety Report 5089284-7 (Version None)
Quarter: 2006Q3

REPORT INFORMATION
  Report Type: 
  Country: None (occurrence: None)
  Receive Date: 20060825
  Receipt Date: 20060815
  Transmission Date: 20061208
  Serious: Yes (Other)
  Sender: FDA-Public Use
  Company Number: DE-ABBOTT-06P-062-0340787-00

PATIENT
  Age: 8 Year
  Sex: Male

DRUGS (5)
  1. VALPROIC ACID [Suspect]
     Indication: GRAND MAL CONVULSION
  2. VALPROIC ACID [Suspect]
  3. VIGABATRIN [Concomitant]
     Indication: GRAND MAL CONVULSION
  4. CEFTAZIDINE [Concomitant]
     Indication: PNEUMONIA
  5. GENTAMICIN [Concomitant]
     Indication: PNEUMONIA

REACTIONS (4)
  - COAGULATION FACTOR XIII LEVEL DECREASED [None]
  - COAGULOPATHY [None]
  - PLATELET FUNCTION TEST ABNORMAL [None]
  - THROMBOCYTOPENIA [None]
